FAERS Safety Report 25762014 (Version 1)
Quarter: 2025Q3

REPORT INFORMATION
  Report Type: Spontaneous
  Country: US (occurrence: None)
  Receive Date: 20250904
  Receipt Date: 20250904
  Transmission Date: 20251021
  Serious: Yes (Hospitalization, Disabling)
  Sender: FDA-CTU
  Company Number: None

PATIENT

DRUGS (12)
  1. LACTULOSE [Suspect]
     Active Substance: LACTULOSE
  2. MIRALAX-DOCUSATE [Concomitant]
  3. PRAZSIN [Concomitant]
  4. LABETALOL [Concomitant]
     Active Substance: LABETALOL
  5. BACLOFEN [Concomitant]
     Active Substance: BACLOFEN
  6. NORTRPITVLINE [Concomitant]
  7. PREGABALIN [Concomitant]
     Active Substance: PREGABALIN
  8. MELATONIN [Concomitant]
     Active Substance: MELATONIN
  9. LESARTIAN [Concomitant]
  10. DIAZEPAM [Concomitant]
     Active Substance: DIAZEPAM
  11. TRAZODONE [Concomitant]
     Active Substance: TRAZODONE HYDROCHLORIDE
  12. AMLODIPINE BESYLATE [Concomitant]
     Active Substance: AMLODIPINE BESYLATE
     Dosage: FREQUENCY : TWICE A DAY;?

REACTIONS (1)
  - Intestinal obstruction [None]

NARRATIVE: CASE EVENT DATE: 20250808
